FAERS Safety Report 20237532 (Version 2)
Quarter: 2022Q1

REPORT INFORMATION
  Report Type: Spontaneous
  Country: US (occurrence: US)
  Receive Date: 20211228
  Receipt Date: 20220222
  Transmission Date: 20220423
  Serious: No
  Sender: FDA-Public Use
  Company Number: US-PFIZER INC-202101807393

PATIENT
  Age: 37 Year
  Sex: Female

DRUGS (2)
  1. XELJANZ XR [Suspect]
     Active Substance: TOFACITINIB CITRATE
     Indication: Rheumatoid arthritis
     Dosage: 11 MG, 1X/DAY
     Route: 048
     Dates: start: 202002, end: 202112
  2. XELJANZ XR [Suspect]
     Active Substance: TOFACITINIB CITRATE
     Dosage: 11 MG, 1X/DAY
     Route: 048
     Dates: start: 202002

REACTIONS (5)
  - Malaise [Unknown]
  - Illness [Unknown]
  - Infection [Unknown]
  - Rash [Unknown]
  - Systemic lupus erythematosus rash [Unknown]

NARRATIVE: CASE EVENT DATE: 20211213
